FAERS Safety Report 19143422 (Version 2)
Quarter: 2021Q2

REPORT INFORMATION
  Report Type: Spontaneous
  Country: US (occurrence: US)
  Receive Date: 20210416
  Receipt Date: 20210421
  Transmission Date: 20210717
  Serious: Yes (Other)
  Sender: FDA-Public Use
  Company Number: US-DRREDDYS-USA/USA/21/0134336

PATIENT
  Age: 40 Year
  Sex: Male

DRUGS (16)
  1. LIDOCAINE. [Suspect]
     Active Substance: LIDOCAINE
     Indication: PAIN IN JAW
     Dosage: INFUSION AS NEEDED
  2. DEXAMETHASONE SODIUM PHOSPHATE INJECTION, 4 MG/ML [Suspect]
     Active Substance: DEXAMETHASONE SODIUM PHOSPHATE
     Indication: HEADACHE
  3. HYDROMORPHONE [Suspect]
     Active Substance: HYDROMORPHONE
     Indication: PAIN IN JAW
     Dosage: 24?30MG PER TUBE EVERY 3H AS NEEDED
  4. HYDROMORPHONE [Suspect]
     Active Substance: HYDROMORPHONE
     Indication: HEADACHE
  5. DEXAMETHASONE SODIUM PHOSPHATE INJECTION, 4 MG/ML [Suspect]
     Active Substance: DEXAMETHASONE SODIUM PHOSPHATE
     Indication: PAIN IN JAW
     Dosage: PER TUBE ONCE DAILY
  6. PARACETAMOL [Suspect]
     Active Substance: ACETAMINOPHEN
     Indication: HEADACHE
  7. METHADONE [Suspect]
     Active Substance: METHADONE HYDROCHLORIDE
     Indication: HEADACHE
     Dosage: 100MG PER TUBE EVERY 6H
  8. OXCARBAZEPINE. [Suspect]
     Active Substance: OXCARBAZEPINE
     Indication: HEADACHE
  9. FENTANYL. [Suspect]
     Active Substance: FENTANYL
     Indication: PAIN IN JAW
     Dosage: 200?400MG EVERY 3H AS NEEDED
  10. FENTANYL. [Suspect]
     Active Substance: FENTANYL
     Indication: HEADACHE
  11. PREGABALIN. [Suspect]
     Active Substance: PREGABALIN
     Indication: PAIN IN JAW
     Dosage: 300MG PER TUBE EVERY 8H
  12. METHADONE [Suspect]
     Active Substance: METHADONE HYDROCHLORIDE
     Indication: PAIN IN JAW
     Dosage: 80MG PER TUBE EVERY 6H
  13. PARACETAMOL [Suspect]
     Active Substance: ACETAMINOPHEN
     Indication: PAIN IN JAW
     Dosage: 650 MG PER TUBE EVERY 8H
  14. PREGABALIN. [Suspect]
     Active Substance: PREGABALIN
     Indication: HEADACHE
  15. OXCARBAZEPINE. [Suspect]
     Active Substance: OXCARBAZEPINE
     Indication: PAIN IN JAW
     Dosage: 300MG PER TUBE TWICE DAILY
  16. LIDOCAINE. [Suspect]
     Active Substance: LIDOCAINE
     Indication: HEADACHE

REACTIONS (1)
  - Drug ineffective [Unknown]
